FAERS Safety Report 8189126-7 (Version None)
Quarter: 2012Q1

REPORT INFORMATION
  Report Type: 
  Country: None (occurrence: None)
  Receive Date: 20120307
  Receipt Date: 20120301
  Transmission Date: 20120608
  Serious: Yes (Death)
  Sender: FDA-Public Use
  Company Number: JP-GE HEALTHCARE MEDICAL DIAGNOSTICS-MSTR-NO-1203S-0017

PATIENT
  Sex: Female

DRUGS (1)
  1. METASTRON [Suspect]
     Indication: METASTATIC PAIN
     Route: 042
     Dates: start: 20111226, end: 20111226

REACTIONS (6)
  - PLATELET COUNT DECREASED [None]
  - DISSEMINATED INTRAVASCULAR COAGULATION [None]
  - HEPATIC FUNCTION ABNORMAL [None]
  - NEOPLASM PROGRESSION [None]
  - LUNG NEOPLASM MALIGNANT [None]
  - DEATH [None]
